FAERS Safety Report 8270093-2 (Version None)
Quarter: 2012Q2

REPORT INFORMATION
  Report Type: 
  Country: None (occurrence: None)
  Receive Date: 20120410
  Receipt Date: 20120404
  Transmission Date: 20120825
  Serious: Yes (Death, Hospitalization)
  Sender: FDA-Public Use
  Company Number: JP-JNJFOC-20100508116

PATIENT
  Sex: Female
  Weight: 48 kg

DRUGS (19)
  1. DOXORUBICIN HCL [Suspect]
     Indication: OVARIAN CANCER RECURRENT
     Dosage: COURSE 4
     Route: 042
     Dates: start: 20100518, end: 20100518
  2. MUCOSTA [Concomitant]
     Indication: PROPHYLAXIS
     Route: 048
     Dates: start: 20100127
  3. DOXORUBICIN HCL [Suspect]
     Dosage: COURSE 3
     Route: 042
     Dates: start: 20100406, end: 20100406
  4. DOXORUBICIN HCL [Suspect]
     Dosage: COURSE 1
     Route: 042
     Dates: start: 20100127, end: 20100127
  5. AZUNOL [Concomitant]
     Indication: PROPHYLAXIS
     Route: 049
     Dates: start: 20100127, end: 20100128
  6. LECICARBON [Concomitant]
     Indication: CONSTIPATION
     Route: 054
     Dates: end: 20100128
  7. VOLTAREN-XR [Concomitant]
     Indication: MALIGNANT ASCITES
     Route: 048
     Dates: end: 20100128
  8. SELBEX [Concomitant]
     Indication: GASTRITIS
     Route: 048
     Dates: end: 20100128
  9. RAMELTEON [Concomitant]
     Indication: PROPHYLAXIS
     Route: 042
     Dates: start: 20100127, end: 20100128
  10. VITAMEDIN [Concomitant]
     Indication: PROPHYLAXIS
     Route: 042
     Dates: start: 20100127, end: 20100128
  11. ALOSENN [Concomitant]
     Indication: CONSTIPATION
     Route: 048
  12. DECADRON [Concomitant]
     Indication: PROPHYLAXIS
     Route: 048
     Dates: start: 20100201, end: 20100201
  13. SPIROPENT [Concomitant]
     Indication: STRESS URINARY INCONTINENCE
     Route: 048
  14. ALOSENN [Concomitant]
     Indication: PROPHYLAXIS
     Route: 048
  15. LAXOBERON [Concomitant]
     Indication: CONSTIPATION
     Route: 048
     Dates: end: 20100129
  16. DOXORUBICIN HCL [Suspect]
     Dosage: COURSE 2
     Route: 042
     Dates: start: 20100305, end: 20100305
  17. DECADRON [Concomitant]
     Route: 048
     Dates: start: 20100126, end: 20100131
  18. DECADRON [Concomitant]
     Route: 048
     Dates: start: 20100202, end: 20100202
  19. TOFRANIL MITE [Concomitant]
     Indication: STRESS URINARY INCONTINENCE
     Route: 048

REACTIONS (4)
  - OVARIAN CANCER RECURRENT [None]
  - PSEUDOMEMBRANOUS COLITIS [None]
  - ILEUS [None]
  - CANCER PAIN [None]
